FAERS Safety Report 4802871-3 (Version None)
Quarter: 2005Q4

REPORT INFORMATION
  Report Type: 
  Country: None (occurrence: None)
  Receive Date: 20051013
  Receipt Date: 20050923
  Transmission Date: 20060501
  Serious: Yes (Hospitalization, Other)
  Sender: FDA-Public Use
  Company Number: DE_050816729

PATIENT
  Age: 65 Year
  Sex: Male

DRUGS (3)
  1. FORTEO [Suspect]
     Indication: OSTEOPOROSIS
     Dates: start: 20041201
  2. CALCIUM GLUCONATE [Concomitant]
  3. VITAMIN D [Concomitant]

REACTIONS (4)
  - HEPATIC NEOPLASM MALIGNANT [None]
  - INTENTIONAL DRUG MISUSE [None]
  - LIVER DISORDER [None]
  - PAIN IN EXTREMITY [None]
